FAERS Safety Report 4548800-1 (Version None)
Quarter: 2004Q4

REPORT INFORMATION
  Report Type: 
  Country: None (occurrence: None)
  Receive Date: 20041223
  Receipt Date: 20041029
  Transmission Date: 20050328
  Serious: Yes (Other)
  Sender: FDA-Public Use
  Company Number: US-JNJFOC-20041100391

PATIENT
  Age: 35 Year
  Sex: Female
  Weight: 69.4003 kg

DRUGS (5)
  1. ORTHO EVRA [Suspect]
     Indication: CONTRACEPTION
     Dosage: 1 DOSE(S), 3 IN 4 WEEK, TRANSDERMAL
     Route: 062
     Dates: start: 20040601, end: 20041001
  2. EFFEXOR [Concomitant]
  3. ADDERALL (OBETROL) [Concomitant]
  4. PROTONIX [Concomitant]
  5. TYLENOL PM [Concomitant]

REACTIONS (3)
  - DRUG EXPOSURE DURING PREGNANCY [None]
  - RASH [None]
  - UNINTENDED PREGNANCY [None]
